FAERS Safety Report 7914448-1 (Version None)
Quarter: 2011Q4

REPORT INFORMATION
  Report Type: 
  Country: None (occurrence: None)
  Receive Date: 20111115
  Receipt Date: 20111107
  Transmission Date: 20120403
  Serious: Yes (Disabling)
  Sender: FDA-Public Use
  Company Number: FR-SANOFI-AVENTIS-2011SA029472

PATIENT
  Age: 34 Year
  Sex: Male
  Weight: 71 kg

DRUGS (3)
  1. XALATAN [Concomitant]
     Indication: GLAUCOMA
     Route: 057
  2. LANTUS [Suspect]
     Route: 051
     Dates: start: 20070201, end: 20100901
  3. TIMOPTOL [Concomitant]
     Route: 057

REACTIONS (11)
  - ASTHENIA [None]
  - AMYOTROPHY [None]
  - FORMICATION [None]
  - MYALGIA [None]
  - HEART RATE DECREASED [None]
  - WEIGHT DECREASED [None]
  - DIABETIC NEUROPATHY [None]
  - PRESYNCOPE [None]
  - MYOTONIC DYSTROPHY [None]
  - BLOOD PRESSURE DECREASED [None]
  - INTRAOCULAR PRESSURE DECREASED [None]
